FAERS Safety Report 10003563 (Version 9)
Quarter: 2015Q2

REPORT INFORMATION
  Report Type: Report from Study
  Country: CA (occurrence: CA)
  Receive Date: 20140312
  Receipt Date: 20150611
  Transmission Date: 20150821
  Serious: Yes (Death, Hospitalization)
  Sender: FDA-Public Use
  Company Number: PHHY2013CA066837

PATIENT
  Age: 73 Year
  Sex: Female

DRUGS (2)
  1. SANDOSTATIN LAR DEPOT [Suspect]
     Active Substance: OCTREOTIDE ACETATE
     Indication: NEUROENDOCRINE TUMOUR
     Dosage: 30 MG, EVERY 28 DAYS (4 WEEKS)
     Route: 030
     Dates: start: 20130604, end: 20150501
  2. SANDOSTATIN [Suspect]
     Active Substance: OCTREOTIDE ACETATE
     Indication: NEUROENDOCRINE TUMOUR
     Dosage: 30 UG, ONCE/SINGLE
     Route: 058
     Dates: start: 20130530, end: 20130530

REACTIONS (10)
  - Asthenia [Unknown]
  - Palpitations [Unknown]
  - Thirst [Unknown]
  - Gait disturbance [Unknown]
  - Death [Fatal]
  - Influenza [Unknown]
  - Weight decreased [Unknown]
  - Nasopharyngitis [Unknown]
  - Fall [Unknown]
  - Confusional state [Unknown]

NARRATIVE: CASE EVENT DATE: 20130606
